FAERS Safety Report 4277583-8 (Version None)
Quarter: 2004Q1

REPORT INFORMATION
  Report Type: 
  Country: None (occurrence: None)
  Receive Date: 20040122
  Receipt Date: 20030801
  Transmission Date: 20041129
  Serious: Yes (Hospitalization)
  Sender: FDA-Public Use
  Company Number: WAES 0308AUS00012

PATIENT
  Age: 82 Year
  Sex: Female
  Weight: 105 kg

DRUGS (3)
  1. ASPIRIN [Suspect]
  2. CELECOXIB [Suspect]
     Indication: ARTHRITIS
     Route: 048
     Dates: start: 20010512, end: 20010712
  3. VIOXX [Suspect]
     Indication: ARTHRITIS
     Route: 048
     Dates: start: 20010629, end: 20010712

REACTIONS (4)
  - ACUTE PULMONARY OEDEMA [None]
  - ANAEMIA [None]
  - MELAENA [None]
  - PULMONARY OEDEMA [None]
